FAERS Safety Report 5883341-0 (Version None)
Quarter: 2008Q3

REPORT INFORMATION
  Report Type: 
  Country: None (occurrence: None)
  Receive Date: 20080912
  Receipt Date: 20080912
  Transmission Date: 20090109
  Serious: Yes (Other)
  Sender: FDA-Public Use
  Company Number: None

PATIENT
  Age: 30 Year
  Sex: Female

DRUGS (2)
  1. BUPROPION SL 150MG [Suspect]
     Indication: MAJOR DEPRESSION
     Dosage: 150MG BID PO 7/25/08, DAILY THERE AFTER
     Route: 048
     Dates: start: 20080725
  2. XANAX [Concomitant]

REACTIONS (1)
  - GRAND MAL CONVULSION [None]
